FAERS Safety Report 18202281 (Version 1)
Quarter: 2020Q3

REPORT INFORMATION
  Report Type: Spontaneous
  Country: US (occurrence: US)
  Receive Date: 20200827
  Receipt Date: 20200827
  Transmission Date: 20201103
  Serious: No
  Sender: FDA-Public Use
  Company Number: None

PATIENT

DRUGS (2)
  1. NAFCILLIN [Concomitant]
     Active Substance: NAFCILLIN SODIUM
  2. DOBUTAMINE IN DEXTROSE [Suspect]
     Active Substance: DOBUTAMINE HYDROCHLORIDE

REACTIONS (2)
  - Drug therapeutic incompatibility [None]
  - Product deposit [None]
